FAERS Safety Report 10615129 (Version 3)
Quarter: 2015Q1

REPORT INFORMATION
  Report Type: Spontaneous
  Country: DE (occurrence: DE)
  Receive Date: 20141201
  Receipt Date: 20150212
  Transmission Date: 20150720
  Serious: Yes (Other)
  Sender: FDA-Public Use
  Company Number: DE-RANBAXY-2014RR-88825

PATIENT
  Age: 47 Year
  Sex: Male
  Weight: 77 kg

DRUGS (2)
  1. CEFUROX BASICS 125 MG / 5 ML GRANULAT ZUR HERST [Suspect]
     Active Substance: CEFUROXIME
     Indication: PRODUCT USED FOR UNKNOWN INDICATION
     Dosage: ABOUT 1ML
     Route: 048
     Dates: start: 20141116
  2. IBUPROFEN. [Concomitant]
     Active Substance: IBUPROFEN
     Indication: HEADACHE
     Dosage: 400 MG, IN THE EARLY MORNING
     Route: 048

REACTIONS (12)
  - Swelling face [Recovered/Resolved]
  - Dizziness [Recovered/Resolved]
  - Agitation [Recovered/Resolved]
  - Pruritus [Recovered/Resolved]
  - Abdominal pain upper [Recovered/Resolved]
  - Intentional product misuse [Recovered/Resolved]
  - Lip swelling [Recovered/Resolved]
  - Ocular hyperaemia [Recovered/Resolved]
  - Anaphylactic reaction [Recovered/Resolved]
  - Erythema [Recovered/Resolved]
  - Tremor [Recovered/Resolved]
  - Flushing [Recovered/Resolved]

NARRATIVE: CASE EVENT DATE: 20141116
